FAERS Safety Report 21544312 (Version 1)
Quarter: 2022Q4

REPORT INFORMATION
  Report Type: Other
  Country: IN (occurrence: None)
  Receive Date: 20221102
  Receipt Date: 20221102
  Transmission Date: 20230113
  Serious: Yes (Other)
  Sender: FDA-Public Use
  Company Number: IN-ROCHE-3190499

PATIENT
  Age: 65 Year
  Sex: Male

DRUGS (1)
  1. TECENTRIQ [Suspect]
     Active Substance: ATEZOLIZUMAB
     Indication: Prostate cancer metastatic
     Route: 042
     Dates: start: 20220921

REACTIONS (4)
  - Haematuria [Unknown]
  - Renal disorder [Unknown]
  - Urinary incontinence [Unknown]
  - Off label use [Unknown]
